FAERS Safety Report 8362846-7 (Version None)
Quarter: 2012Q2

REPORT INFORMATION
  Report Type: 
  Country: None (occurrence: None)
  Receive Date: 20120516
  Receipt Date: 20120514
  Transmission Date: 20120825
  Serious: Yes (Death)
  Sender: FDA-Public Use
  Company Number: PHHY2012NL003071

PATIENT
  Sex: Female
  Weight: 71 kg

DRUGS (9)
  1. ZOMETA [Suspect]
     Indication: BREAST CANCER METASTATIC
     Dosage: 4 MG / 100 ML, 1X PER 42 DAYS
     Route: 042
     Dates: start: 20081201
  2. ZOMETA [Suspect]
     Dosage: 4 MG / 100 ML, 1X PER 42 DAYS
     Route: 042
     Dates: start: 20120112
  3. SINTROM [Concomitant]
  4. ZOMETA [Suspect]
     Dosage: 4 MG / 100 ML, 1X PER 42 DAYS
     Route: 042
     Dates: start: 20111201
  5. ZOMETA [Suspect]
     Dosage: 4 MG / 100 ML, 1X PER 42 DAYS
     Route: 042
     Dates: start: 20120227
  6. ZOMETA [Suspect]
     Dosage: 4 MG / 100 ML, 1X PER 42 DAYS
     Route: 042
     Dates: start: 20110415
  7. ZOMETA [Suspect]
     Dosage: 4 MG / 100 ML, 1X PER 42 DAYS
     Route: 042
     Dates: start: 20120417
  8. PREDNISONE TAB [Concomitant]
  9. XELODA [Concomitant]

REACTIONS (7)
  - DEATH [None]
  - DYSPNOEA [None]
  - PALLOR [None]
  - TREMOR [None]
  - COUGH [None]
  - GENERAL PHYSICAL HEALTH DETERIORATION [None]
  - VOMITING [None]
